FAERS Safety Report 4336343-X (Version None)
Quarter: 2004Q2

REPORT INFORMATION
  Report Type: 
  Country: None (occurrence: None)
  Receive Date: 20040407
  Receipt Date: 20040331
  Transmission Date: 20050107
  Serious: Yes (Other)
  Sender: FDA-Public Use
  Company Number: US-JNJFOC-20040306782

PATIENT
  Age: 16 Year
  Sex: Male
  Weight: 69.8539 kg

DRUGS (2)
  1. CONCERTA [Suspect]
     Indication: ATTENTION DEFICIT/HYPERACTIVITY DISORDER
     Dosage: 108 MG, 1IN 1 DAY, ORAL
     Route: 048
     Dates: start: 20030601
  2. DEXMETHYLPHENIDATE HYDROCHLORIDE (METHYLPHENIDATE) [Concomitant]

REACTIONS (3)
  - DYSPNOEA [None]
  - OESOPHAGEAL SPASM [None]
  - OESOPHAGITIS [None]
